FAERS Safety Report 14654704 (Version 5)
Quarter: 2023Q4

REPORT INFORMATION
  Report Type: Spontaneous
  Country: US (occurrence: US)
  Receive Date: 20180319
  Receipt Date: 20231010
  Transmission Date: 20240109
  Serious: No
  Sender: FDA-Public Use
  Company Number: US-CELLTRION HEALTHCARE HUNGARY KFT-2017US014638

PATIENT

DRUGS (9)
  1. INFLECTRA [Suspect]
     Active Substance: INFLIXIMAB-DYYB
     Indication: Ankylosing spondylitis
     Dosage: 4 VIALS (DF)
     Route: 065
     Dates: start: 20171006, end: 20171006
  2. INFLECTRA [Suspect]
     Active Substance: INFLIXIMAB-DYYB
     Indication: Spondyloarthropathy
     Dosage: 4 VIALS (DF)
     Route: 065
     Dates: start: 20171207, end: 20171207
  3. INFLECTRA [Suspect]
     Active Substance: INFLIXIMAB-DYYB
     Dosage: 4 VIALS (DF)
     Route: 065
     Dates: start: 20180129, end: 20180129
  4. INFLECTRA [Suspect]
     Active Substance: INFLIXIMAB-DYYB
     Dosage: 4 DF (4 VIALS)
     Route: 065
     Dates: start: 20180405, end: 20180405
  5. INFLECTRA [Suspect]
     Active Substance: INFLIXIMAB-DYYB
     Dosage: UNK
     Route: 065
     Dates: start: 20180531, end: 20180531
  6. INFLECTRA [Suspect]
     Active Substance: INFLIXIMAB-DYYB
     Dosage: UNKNOWN, INFUSION EVERY EIGHT WEEKS
  7. INFLECTRA [Suspect]
     Active Substance: INFLIXIMAB-DYYB
     Dosage: HE GETS IT EVERY 8 WEEKS AT THE DOCTOR^S OFFICE
     Dates: start: 202112
  8. INFLECTRA [Suspect]
     Active Substance: INFLIXIMAB-DYYB
     Dosage: INFLECTRA 400MG IV Q EVERY 7 WEEKS, QUANTITY: 4 VIALS REFILLS : 8
     Route: 042
  9. INFLECTRA [Suspect]
     Active Substance: INFLIXIMAB-DYYB
     Dosage: INFLECTRA 40MG IV Q EVERY 7 WEEKS QUANTITY: 4 REFILLS: 8
     Route: 042

REACTIONS (5)
  - Insurance issue [Unknown]
  - Inappropriate schedule of product administration [Unknown]
  - Therapy interrupted [Unknown]
  - Off label use [Unknown]
  - Underdose [Unknown]

NARRATIVE: CASE EVENT DATE: 20220128
